FAERS Safety Report 25888420 (Version 1)
Quarter: 2025Q4

REPORT INFORMATION
  Report Type: Spontaneous
  Country: US (occurrence: US)
  Receive Date: 20251007
  Receipt Date: 20251007
  Transmission Date: 20260119
  Serious: No
  Sender: BAUSCH AND LOMB
  Company Number: US-BAUSCHBL-2025BNL029543

PATIENT
  Sex: Female

DRUGS (9)
  1. KETOTIFEN [Suspect]
     Active Substance: KETOTIFEN
     Indication: Mast cell activation syndrome
  2. LORAZEPAM [Suspect]
     Active Substance: LORAZEPAM
     Indication: Mast cell activation syndrome
     Dosage: STABLE LOW DOSING, NO SIGN OF ADDICTION
  3. DIPHENHYDRAMINE [Suspect]
     Active Substance: DIPHENHYDRAMINE
     Indication: Mast cell activation syndrome
     Dosage: (CBD +/- THC)
  4. LORATADINE [Suspect]
     Active Substance: LORATADINE
     Indication: Mast cell activation syndrome
  5. NALTREXONE [Suspect]
     Active Substance: NALTREXONE
     Indication: Mast cell activation syndrome
     Dosage: LOW DOSE
  6. QUERCETIN [Suspect]
     Active Substance: QUERCETIN
     Indication: Mast cell activation syndrome
  7. VITAMIN C [Suspect]
     Active Substance: ASCORBIC ACID
     Indication: Mast cell activation syndrome
  8. CHOLECALCIFEROL [Suspect]
     Active Substance: CHOLECALCIFEROL
     Indication: Mast cell activation syndrome
  9. QUERCETIN [Concomitant]
     Active Substance: QUERCETIN
     Indication: Mast cell activation syndrome

REACTIONS (1)
  - Therapy partial responder [Unknown]
